FAERS Safety Report 5524000-3 (Version None)
Quarter: 2007Q4

REPORT INFORMATION
  Report Type: 
  Country: None (occurrence: None)
  Receive Date: 20071121
  Receipt Date: 20071113
  Transmission Date: 20080405
  Serious: Yes (Death, Other)
  Sender: FDA-Public Use
  Company Number: JP-BRISTOL-MYERS SQUIBB COMPANY-13980313

PATIENT
  Age: 84 Year
  Sex: Female

DRUGS (7)
  1. ARIPIPRAZOLE [Suspect]
     Indication: DEMENTIA
     Route: 048
     Dates: start: 20070921, end: 20071030
  2. QUETIAPINE FUMARATE [Concomitant]
     Dosage: 21-SEP-07 TO NOT CONTINUING,DOSE:50MG,ROUTE:ORAL.
     Route: 048
     Dates: end: 20071030
  3. BROTIZOLAM [Concomitant]
     Route: 048
     Dates: end: 20071030
  4. HALOPERIDOL [Concomitant]
     Route: 048
     Dates: end: 20070921
  5. LEVOMEPROMAZINE MALEATE [Concomitant]
     Route: 048
     Dates: end: 20070921
  6. LACTULOSE [Concomitant]
     Route: 048
     Dates: end: 20070921
  7. URSODIOL [Concomitant]
     Route: 048
     Dates: end: 20070921

REACTIONS (3)
  - ENCEPHALOPATHY [None]
  - HEPATIC FAILURE [None]
  - PNEUMONIA [None]
